FAERS Safety Report 24605083 (Version 1)
Quarter: 2024Q4

REPORT INFORMATION
  Report Type: Spontaneous
  Country: US (occurrence: US)
  Receive Date: 20241111
  Receipt Date: 20241111
  Transmission Date: 20250115
  Serious: No
  Sender: PARATEK PHARMACEUTICALS
  Company Number: US-PARATEK PHARMACEUTICALS, INC.-2024PTK00860

PATIENT
  Age: 77 Year
  Sex: Female
  Weight: 44 kg

DRUGS (5)
  1. OMADACYCLINE [Suspect]
     Active Substance: OMADACYCLINE
     Indication: Mycobacterium abscessus infection
     Dosage: UNK
     Route: 048
  2. OMADACYCLINE [Suspect]
     Active Substance: OMADACYCLINE
     Indication: Pneumonia
  3. OMADACYCLINE [Suspect]
     Active Substance: OMADACYCLINE
     Indication: Atypical mycobacterial infection
  4. AZITHROMYCIN [Concomitant]
     Active Substance: AZITHROMYCIN
  5. AMIKACIN [Concomitant]
     Active Substance: AMIKACIN
     Dosage: UNK, 3X/WEEK

REACTIONS (2)
  - Diarrhoea [Unknown]
  - Off label use [Not Recovered/Not Resolved]
